FAERS Safety Report 9157425 (Version 1)
Quarter: 2013Q1

REPORT INFORMATION
  Report Type: Spontaneous
  Country: US (occurrence: None)
  Receive Date: 20130204
  Receipt Date: 20130204
  Transmission Date: 20140127
  Serious: Yes (Other)
  Sender: FDA-Public Use
  Company Number: US-ALKEM-000002

PATIENT
  Age: 82 Year
  Sex: Male

DRUGS (4)
  1. GABAPENTIN [Suspect]
     Indication: EPILEPSY
  2. AMLODIPINE(AMLODIPINE) [Concomitant]
  3. CARBAMAZEPHINE(CARBAMAZEPINE) [Concomitant]
  4. FLUOXETINE(FLUOXETINE) [Concomitant]

REACTIONS (1)
  - Pseudolymphoma [None]
